FAERS Safety Report 21890939 (Version 1)
Quarter: 2023Q1

REPORT INFORMATION
  Report Type: Spontaneous
  Country: US (occurrence: None)
  Receive Date: 20230119
  Receipt Date: 20230119
  Transmission Date: 20230418
  Serious: Yes (Other)
  Sender: FDA-Public Use
  Company Number: None

PATIENT
  Age: 67 Year
  Sex: Female
  Weight: 93.89 kg

DRUGS (4)
  1. OZEMPIC [Suspect]
     Active Substance: SEMAGLUTIDE
     Indication: Diabetes mellitus
     Dosage: FREQUENCY : WEEKLY;?
     Route: 030
     Dates: end: 202212
  2. LANTUS [Concomitant]
     Active Substance: INSULIN GLARGINE
  3. GLIPIZIDE [Concomitant]
  4. ASPIRIN [Concomitant]
     Active Substance: ASPIRIN

REACTIONS (4)
  - Product supply issue [None]
  - General physical health deterioration [None]
  - Blood glucose increased [None]
  - Intentional product use issue [None]

NARRATIVE: CASE EVENT DATE: 20221101
